FAERS Safety Report 6166497-4 (Version None)
Quarter: 2009Q2

REPORT INFORMATION
  Report Type: 
  Country: None (occurrence: None)
  Receive Date: 20090424
  Receipt Date: 20090420
  Transmission Date: 20091009
  Serious: Yes (Other)
  Sender: FDA-Public Use
  Company Number: ES-ASTRAZENECA-2009AC01107

PATIENT
  Age: 74 Year
  Sex: Male

DRUGS (6)
  1. SEROQUEL [Suspect]
     Indication: ACUTE PSYCHOSIS
     Route: 048
     Dates: start: 20080801
  2. SEROQUEL [Suspect]
     Route: 048
     Dates: start: 20080801
  3. DEPAKENE [Suspect]
     Indication: ACUTE PSYCHOSIS
     Route: 048
     Dates: start: 20080715
  4. DEPAKENE [Suspect]
     Route: 048
     Dates: start: 20080715
  5. LEPONEX [Suspect]
     Indication: ACUTE PSYCHOSIS
     Route: 048
     Dates: start: 20080601, end: 20080818
  6. LORAMET [Concomitant]
     Indication: ACUTE PSYCHOSIS
     Route: 048

REACTIONS (1)
  - FEBRILE NEUTROPENIA [None]
